FAERS Safety Report 5052171-4 (Version None)
Quarter: 2006Q3

REPORT INFORMATION
  Report Type: 
  Country: None (occurrence: None)
  Receive Date: 20060712
  Receipt Date: 20060712
  Transmission Date: 20061208
  Serious: Yes (Hospitalization)
  Sender: FDA-Public Use
  Company Number: None

PATIENT
  Age: 81 Year
  Sex: Male
  Weight: 53.5 kg

DRUGS (7)
  1. WARFARIN SODIUM [Suspect]
     Dosage: 7.5MG QD BY MOUTH
     Route: 048
     Dates: start: 20050310, end: 20050915
  2. PRILOSEC [Concomitant]
  3. SENNOSIDES [Concomitant]
  4. METOCLOPRAMIDE HCL [Concomitant]
  5. OXYCODONE AND ACETAMINOPHEN [Concomitant]
  6. ATORVASTATIN CALCIUM [Concomitant]
  7. DILTIAZEM (INWOOD) [Concomitant]

REACTIONS (1)
  - INTERNATIONAL NORMALISED RATIO INCREASED [None]
